FAERS Safety Report 5776251-0 (Version None)
Quarter: 2008Q2

REPORT INFORMATION
  Report Type: 
  Country: None (occurrence: None)
  Receive Date: 20080616
  Receipt Date: 20080610
  Transmission Date: 20081010
  Serious: Yes (Death, Hospitalization, Other)
  Sender: FDA-Public Use
  Company Number: 163-20785-08031811

PATIENT
  Age: 59 Year
  Sex: Female

DRUGS (20)
  1. THALOMID [Suspect]
     Indication: LUNG NEOPLASM MALIGNANT
     Dosage: 100 MG, 2 IN 1 D, ORAL
     Route: 048
     Dates: start: 20080208
  2. BLOOD THINNERS (ANTICOAGULANT SODIUM CITRATE) [Concomitant]
  3. NEXIUM [Concomitant]
  4. LOTENSIN [Concomitant]
  5. PREMARIN [Concomitant]
  6. SERQOEUL (QUETIAPINE FUMARATE) [Concomitant]
  7. POTASSIUM CL (POTASSIUM CHLORIDE) [Concomitant]
  8. MAG 64 (MAGNESIUM CHLORIDE ANHYDROUS) [Concomitant]
  9. LASIX [Concomitant]
  10. XANAX [Concomitant]
  11. AVINZA [Concomitant]
  12. DILAUDID [Concomitant]
  13. PHENERGAN HCL [Concomitant]
  14. CATAPRES-TTS-1 [Concomitant]
  15. ELMIRON [Concomitant]
  16. ATROVENT HFA (IPRATROPUM BROMIDE) [Concomitant]
  17. ALBUTEROL [Concomitant]
  18. LACTOBACILLUS (LACTOBACILLUS ACIDOPHILUS) [Concomitant]
  19. RELIV PRODUCTS (PARACETAMOL) [Concomitant]
  20. MSM (METHYLSULFONYLMETHANE) [Concomitant]

REACTIONS (4)
  - CEREBRAL HAEMORRHAGE [None]
  - LUNG CARCINOMA CELL TYPE UNSPECIFIED STAGE 0 [None]
  - MALIGNANT NEOPLASM PROGRESSION [None]
  - PNEUMONIA [None]
